FAERS Safety Report 9728248 (Version 1)
Quarter: 2013Q4

REPORT INFORMATION
  Report Type: Spontaneous
  Country: US (occurrence: None)
  Receive Date: 20131203
  Receipt Date: 20131203
  Transmission Date: 20140711
  Serious: Yes (Death)
  Sender: FDA-Public Use
  Company Number: None

PATIENT
  Age: 46 Year
  Sex: Female
  Weight: 113.4 kg

DRUGS (1)
  1. FENTANYL PATCH [Suspect]
     Indication: PAIN
     Dosage: PRN PATCH
     Dates: start: 20100618

REACTIONS (1)
  - Diarrhoea [None]
